FAERS Safety Report 23816625 (Version 2)
Quarter: 2024Q2

REPORT INFORMATION
  Report Type: Spontaneous
  Country: US (occurrence: None)
  Receive Date: 20240503
  Receipt Date: 20240517
  Transmission Date: 20240716
  Serious: Yes (Hospitalization)
  Sender: FDA-Public Use
  Company Number: US-FARMAPROD-202404-1414

PATIENT
  Age: 75 Year
  Sex: Female

DRUGS (26)
  1. OXERVATE [Suspect]
     Active Substance: CENEGERMIN-BKBJ
     Indication: Neurotrophic keratopathy
     Route: 047
     Dates: start: 20240402
  2. ZINC-15 [Concomitant]
  3. VITAMIN C [Concomitant]
     Active Substance: ASCORBIC ACID
     Dosage: SUSTAINED ADMINISTRATION
  4. ACYCLOVIR [Concomitant]
     Active Substance: ACYCLOVIR
  5. DIETARY SUPPLEMENT [Concomitant]
     Active Substance: DIETARY SUPPLEMENT
  6. VITAMINS [Concomitant]
     Active Substance: VITAMINS
  7. VITAMIN E-OIL [Concomitant]
     Dosage: 45 MG /0.25
  8. BEET ROOT-TART CHERRY [Concomitant]
  9. IRON [Concomitant]
     Active Substance: IRON
  10. GLUCOSAMINE [Concomitant]
     Active Substance: GLUCOSAMINE
  11. COD LIVER OIL [Concomitant]
     Active Substance: COD LIVER OIL
     Dosage: 1250 MG-130
  12. VITAMIN A [Concomitant]
     Active Substance: VITAMIN A
  13. VITAMIN B COMPLEX [Concomitant]
     Active Substance: CYANOCOBALAMIN\DEXPANTHENOL\NIACINAMIDE\PYRIDOXINE HYDROCHLORIDE\RIBOFLAVIN 5^-PHOSPHATE SODIUM\THIA
  14. FISH OIL [Concomitant]
     Active Substance: FISH OIL
     Dosage: 1000-210 MG
  15. GARLIC [Concomitant]
     Active Substance: GARLIC
  16. HAIR SKIN AND NAILS [Concomitant]
  17. POTASSIUM [Concomitant]
     Active Substance: POTASSIUM
     Dosage: (99)
  18. MAGNESIUM [Concomitant]
     Active Substance: MAGNESIUM
  19. HERBALS\TURMERIC [Concomitant]
     Active Substance: HERBALS\TURMERIC
  20. REFRESH TEARS [Concomitant]
     Active Substance: CARBOXYMETHYLCELLULOSE SODIUM
  21. ALBUTEROL SULFATE [Concomitant]
     Active Substance: ALBUTEROL SULFATE
  22. VALACYCLOVIR [Concomitant]
     Active Substance: VALACYCLOVIR HYDROCHLORIDE
  23. IBUPROFEN [Concomitant]
     Active Substance: IBUPROFEN
  24. HYDROCHLOROTHIAZIDE [Concomitant]
     Active Substance: HYDROCHLOROTHIAZIDE
  25. ATORVASTATIN CALCIUM [Concomitant]
     Active Substance: ATORVASTATIN CALCIUM
  26. LABETALOL HYDROCHLORIDE [Concomitant]
     Active Substance: LABETALOL\LABETALOL HYDROCHLORIDE

REACTIONS (3)
  - Haemoptysis [Unknown]
  - Nasopharyngitis [Unknown]
  - Product dose omission issue [Not Recovered/Not Resolved]

NARRATIVE: CASE EVENT DATE: 20240421
